FAERS Safety Report 25503975 (Version 1)
Quarter: 2025Q3

REPORT INFORMATION
  Report Type: Spontaneous
  Country: US (occurrence: US)
  Receive Date: 20250702
  Receipt Date: 20250702
  Transmission Date: 20251021
  Serious: No
  Sender: NANJING KING-FRIEND BIOCHEMICAL PHARMACEUTICAL
  Company Number: US-NKFPHARMA-2025MPSPO00002

PATIENT
  Age: 12 Year
  Sex: Female

DRUGS (1)
  1. YUSIMRY [Suspect]
     Active Substance: ADALIMUMAB-AQVH
     Indication: Juvenile idiopathic arthritis
     Route: 065

REACTIONS (7)
  - Pain [Unknown]
  - Accidental exposure to product [Unknown]
  - Incorrect dose administered [Unknown]
  - Drug ineffective [Unknown]
  - Needle issue [Unknown]
  - Device leakage [Unknown]
  - Device difficult to use [Unknown]
